FAERS Safety Report 9867044 (Version 1)
Quarter: 2014Q1

REPORT INFORMATION
  Report Type: Report from Study
  Country: US (occurrence: US)
  Receive Date: 20140204
  Receipt Date: 20140204
  Transmission Date: 20141002
  Serious: Yes (Hospitalization)
  Sender: FDA-Public Use
  Company Number: US-ROCHE-1342241

PATIENT
  Age: 44 Year
  Sex: Female
  Weight: 56.5 kg

DRUGS (2)
  1. BEVACIZUMAB [Suspect]
     Indication: NASOPHARYNGEAL CANCER
     Dosage: LAST DOSE PRIOR TO SAE: 12/MAR/2009
     Route: 042
     Dates: start: 20081113
  2. CISPLATIN [Suspect]
     Indication: NASOPHARYNGEAL CANCER
     Dosage: LAST DOSE PRIOR TO SAE: 12/MAR/2009
     Route: 042
     Dates: start: 20081113

REACTIONS (1)
  - Peripheral ischaemia [Not Recovered/Not Resolved]
